FAERS Safety Report 24645887 (Version 1)
Quarter: 2024Q4

REPORT INFORMATION
  Report Type: Spontaneous
  Country: US (occurrence: US)
  Receive Date: 20241121
  Receipt Date: 20241121
  Transmission Date: 20250114
  Serious: No
  Sender: BRISTOL-MYERS SQUIBB COMPANY
  Company Number: US-BRISTOL-MYERS SQUIBB COMPANY-2024-180482

PATIENT
  Age: 86 Year
  Sex: Male
  Weight: 70.31 kg

DRUGS (2)
  1. ELIQUIS [Suspect]
     Active Substance: APIXABAN
     Indication: Deep vein thrombosis
     Route: 048
     Dates: start: 2024
  2. SYNTHROID [Concomitant]
     Active Substance: LEVOTHYROXINE SODIUM
     Indication: Thyroid disorder

REACTIONS (5)
  - Pruritus [Unknown]
  - Dry skin [Unknown]
  - Haemorrhage [Unknown]
  - Body height decreased [Unknown]
  - Acrochordon [Unknown]

NARRATIVE: CASE EVENT DATE: 20240101
